FAERS Safety Report 5191518-5 (Version None)
Quarter: 2006Q4

REPORT INFORMATION
  Report Type: 
  Country: None (occurrence: None)
  Receive Date: 20061219
  Receipt Date: 20061219
  Transmission Date: 20070319
  Serious: Yes (Death, Hospitalization)
  Sender: FDA-Public Use
  Company Number: None

PATIENT
  Sex: Female
  Weight: 85 kg

DRUGS (2)
  1. ALIMTA [Suspect]
     Dosage: 865 MG
  2. CARBOPLATIN [Suspect]
     Dosage: 555 MG

REACTIONS (17)
  - ATELECTASIS [None]
  - BLOOD PRESSURE DIASTOLIC DECREASED [None]
  - CONVULSION [None]
  - DIARRHOEA [None]
  - HAEMATOCRIT DECREASED [None]
  - HAEMOGLOBIN DECREASED [None]
  - LOBAR PNEUMONIA [None]
  - LYMPHADENOPATHY [None]
  - NECROSIS [None]
  - NEUTROPHIL COUNT DECREASED [None]
  - OBSTRUCTIVE AIRWAYS DISORDER [None]
  - PLATELET COUNT DECREASED [None]
  - PNEUMONIA STAPHYLOCOCCAL [None]
  - PNEUMONITIS [None]
  - PULMONARY CAVITATION [None]
  - PULMONARY HAEMORRHAGE [None]
  - SINUS TACHYCARDIA [None]
